FAERS Safety Report 26030405 (Version 1)
Quarter: 2025Q4

REPORT INFORMATION
  Report Type: Report from Study
  Country: US (occurrence: US)
  Receive Date: 20251112
  Receipt Date: 20251112
  Transmission Date: 20260117
  Serious: Yes (Hospitalization, Other)
  Sender: ABBVIE
  Company Number: US-ABBVIE-5977245

PATIENT
  Age: 54 Year
  Sex: Male

DRUGS (20)
  1. VENCLEXTA [Suspect]
     Active Substance: VENETOCLAX
     Indication: Monoclonal gammopathy
     Dosage: FORM STRENGTH 100 MILLIGRAMS
     Route: 048
  2. VENCLEXTA [Suspect]
     Active Substance: VENETOCLAX
     Indication: Monoclonal gammopathy
     Route: 048
  3. VENCLEXTA [Suspect]
     Active Substance: VENETOCLAX
     Indication: Monoclonal gammopathy
     Dosage: FORM STRENGTH 100 MILLIGRAMS
     Route: 048
     Dates: start: 20250521
  4. VENCLEXTA [Suspect]
     Active Substance: VENETOCLAX
     Indication: Monoclonal gammopathy
     Route: 048
  5. ACYCLOVIR [Concomitant]
     Active Substance: ACYCLOVIR
     Indication: Antiviral prophylaxis
     Dates: start: 20241024
  6. TIZANIDINE [Concomitant]
     Active Substance: TIZANIDINE
     Indication: Back pain
  7. DARATUMUMAB [Concomitant]
     Active Substance: DARATUMUMAB
     Indication: Product used for unknown indication
  8. SILDENAFIL [Concomitant]
     Active Substance: SILDENAFIL
     Indication: Product used for unknown indication
     Dosage: TAKE 1 TABLET DAILY, AS NEEDED, ONE HR PRIOR TO SEXUAL INTERCOURSE
     Route: 048
  9. SUMATRIPTAN [Concomitant]
     Active Substance: SUMATRIPTAN
     Indication: Headache
     Dosage: TAKE 1 TABLET BY MOUTH AT HEADACHE ONSET IF NEEDED. REPEAT DOSE ONCE AT 2 HOURS IF NO RELIEF. DO ...
     Route: 048
     Dates: start: 20221214, end: 20251030
  10. TAMSULOSIN [Concomitant]
     Active Substance: TAMSULOSIN
     Indication: Product used for unknown indication
     Dosage: TAKE 1 CAPSULE BY MOUTH DAILY. - ORAL
     Route: 048
     Dates: start: 20240528
  11. ACETAMINOPHEN [Concomitant]
     Active Substance: ACETAMINOPHEN
     Indication: Pain
     Dosage: TAKE 1 CAPSULE BY MOUTH 4 TIMES A DAY
     Route: 048
     Dates: start: 20190507
  12. CYANOCOBALAMIN [Concomitant]
     Active Substance: CYANOCOBALAMIN
     Indication: Product used for unknown indication
     Dosage: TAKE 1 TABLET BY MOUTH IN THE MORNING. - ORAL
     Route: 048
     Dates: start: 20250702
  13. DICYCLOMINE [Concomitant]
     Active Substance: DICYCLOMINE HYDROCHLORIDE
     Indication: Abdominal pain
     Dosage: TAKE 1 CAPSULE BY MOUTH EVERY 8 HOURS
     Dates: start: 20250629, end: 20251030
  14. DULOXETINE [Concomitant]
     Active Substance: DULOXETINE
     Indication: Product used for unknown indication
     Dosage: TAKE 1 CAPSULE BY MOUTH DAILY. - ORAL
     Route: 048
     Dates: start: 20220629
  15. Ergocalcifero [Concomitant]
     Indication: Product used for unknown indication
     Dosage: 1.25 MG (50,000 UNIT) CAPSULE?TAKE 1 CAPSULE BY MOUTH ONCE A WEEK - ORAL
     Route: 048
     Dates: start: 20250708, end: 20251030
  16. LIDOCAINE [Concomitant]
     Active Substance: LIDOCAINE
     Indication: Pain
     Dosage: APPLY 1 APPLICATION TO AFFECTED AREA 2 TIMES A DAY
     Dates: start: 20220711, end: 20251030
  17. LOPERAMIDE [Concomitant]
     Active Substance: LOPERAMIDE
     Indication: Diarrhoea
     Dosage: TAKE 1 CAPSULE BY MOUTH EVERY 4 HOURS
     Route: 048
     Dates: start: 20250520, end: 20251030
  18. MELATONIN [Concomitant]
     Active Substance: MELATONIN
     Indication: Insomnia
     Dosage: 1 MG ORAL TABLET CHEWABLE?CHEW 5 MG DAILY AT BEDTIME
     Route: 048
  19. ONDANSETRON [Concomitant]
     Active Substance: ONDANSETRON
     Indication: Nausea
     Dosage: TAKE 1 TABLET BY MOUTH EVERY 8 HOURS
     Route: 048
     Dates: start: 20220524, end: 20250905
  20. OXCARBAZEPINE [Concomitant]
     Active Substance: OXCARBAZEPINE
     Indication: Product used for unknown indication
     Dosage: TAKE 1 TABLET BY MOUTH 2 TIMES A DAY
     Route: 048
     Dates: start: 20200811

REACTIONS (20)
  - Migraine [Not Recovered/Not Resolved]
  - Off label use [Unknown]
  - Fatigue [Unknown]
  - Renal failure [Unknown]
  - Blood creatinine abnormal [Unknown]
  - Bone lesion [Unknown]
  - Back pain [Unknown]
  - Vitamin B12 deficiency [Unknown]
  - Herpes zoster [Unknown]
  - Escherichia urinary tract infection [Unknown]
  - Lumbar puncture [Unknown]
  - Proteinuria [Unknown]
  - Vitamin D deficiency [Unknown]
  - Hypocalcaemia [Unknown]
  - Insomnia [Unknown]
  - Anaemia [Unknown]
  - Neutropenia [Unknown]
  - Monoclonal gammopathy [Unknown]
  - Protein urine present [Unknown]
  - Urine protein/creatinine ratio abnormal [Unknown]

NARRATIVE: CASE EVENT DATE: 20250908
